FAERS Safety Report 10696968 (Version 1)
Quarter: 2015Q1

REPORT INFORMATION
  Report Type: Spontaneous
  Country: US (occurrence: None)
  Receive Date: 20150107
  Receipt Date: 20150107
  Transmission Date: 20150721
  Serious: Yes (Other)
  Sender: FDA-Public Use
  Company Number: None

PATIENT
  Age: 75 Year
  Sex: Male
  Weight: 90.72 kg

DRUGS (1)
  1. ICY HOT VANISHING SCENT [Suspect]
     Active Substance: MENTHOL
     Indication: ARTHRALGIA
     Dosage: GIVEN INTO/ UNDER THE SKIN

REACTIONS (2)
  - Reaction to preservatives [None]
  - Rash [None]

NARRATIVE: CASE EVENT DATE: 20150105
